FAERS Safety Report 20172175 (Version 2)
Quarter: 2022Q1

REPORT INFORMATION
  Report Type: Report from Study
  Country: US (occurrence: US)
  Receive Date: 20211210
  Receipt Date: 20220107
  Transmission Date: 20220423
  Serious: Yes (Death)
  Sender: FDA-Public Use
  Company Number: US-BoehringerIngelheim-2021-BI-142689

PATIENT
  Sex: Male

DRUGS (2)
  1. OFEV [Suspect]
     Active Substance: NINTEDANIB
     Indication: Interstitial lung disease
     Route: 048
     Dates: start: 20160411, end: 20190407
  2. OFEV [Suspect]
     Active Substance: NINTEDANIB
     Dosage: 150 MG BID DAILY
     Route: 048

REACTIONS (1)
  - Interstitial lung disease [Fatal]
